FAERS Safety Report 8800433 (Version 2)
Quarter: 2012Q4

REPORT INFORMATION
  Report Type: 
  Country: US (occurrence: US)
  Receive Date: 20120921
  Receipt Date: 20121028
  Transmission Date: 20130627
  Serious: No
  Sender: FDA-Public Use
  Company Number: US-009507513-1209USA002909

PATIENT
  Age: 20 Year
  Sex: Female
  Weight: 105.2 kg

DRUGS (2)
  1. NEXPLANON [Suspect]
     Indication: CONTRACEPTION
     Dosage: 1 rod 68 mg
     Route: 059
     Dates: start: 20120830, end: 20120830
  2. NEXPLANON [Suspect]
     Dosage: UNK
     Dates: start: 20120830

REACTIONS (3)
  - Complication of device insertion [Unknown]
  - Device difficult to use [Unknown]
  - No adverse event [Unknown]
